FAERS Safety Report 17683466 (Version 2)
Quarter: 2021Q3

REPORT INFORMATION
  Report Type: Spontaneous
  Country: CA (occurrence: CA)
  Receive Date: 20200420
  Receipt Date: 20210913
  Transmission Date: 20211014
  Serious: Yes (Other)
  Sender: FDA-Public Use
  Company Number: CA-ROCHE-2584845

PATIENT
  Age: 27 Year
  Sex: Female

DRUGS (9)
  1. ARANESP [Suspect]
     Active Substance: DARBEPOETIN ALFA
     Indication: PRODUCT USED FOR UNKNOWN INDICATION
     Dosage: THERAPY DURATION: 375 DAYS
     Route: 058
  2. MYCOPHENOLATE MOFETIL. [Suspect]
     Active Substance: MYCOPHENOLATE MOFETIL
     Indication: PRODUCT USED FOR UNKNOWN INDICATION
     Route: 065
  3. ARANESP [Suspect]
     Active Substance: DARBEPOETIN ALFA
     Dosage: THERAPY DURATION: 135 DAYS
     Route: 058
  4. EPOETIN ALFA [Suspect]
     Active Substance: ERYTHROPOIETIN
     Indication: ANAEMIA OF CHRONIC DISEASE
     Dosage: THERAPY DURATION: 28.0 DAYS
     Route: 058
  5. EPOETIN ALFA [Suspect]
     Active Substance: ERYTHROPOIETIN
     Dosage: THERAPY DURATION: 62.0 DAYS
     Route: 042
  6. EPOETIN ALFA [Suspect]
     Active Substance: ERYTHROPOIETIN
     Dosage: THERAPY DURATION: 28.0 DAYS
     Route: 058
  7. EPOETIN ALFA [Suspect]
     Active Substance: ERYTHROPOIETIN
     Indication: NEPHROGENIC ANAEMIA
     Dosage: THERAPY DURATION: 150.0 DAYS
     Route: 058
  8. PHENYTOIN. [Suspect]
     Active Substance: PHENYTOIN
     Dosage: THERAPY DURATION: 135 DAYS
     Route: 058
  9. PHENYTOIN. [Suspect]
     Active Substance: PHENYTOIN
     Indication: PRODUCT USED FOR UNKNOWN INDICATION
     Dosage: THERAPY DURATION: 1 DAYS
     Route: 065

REACTIONS (3)
  - Aplasia pure red cell [Recovered/Resolved]
  - Anti-erythropoietin antibody negative [Recovered/Resolved]
  - Treatment failure [Recovered/Resolved]
